FAERS Safety Report 24056967 (Version 3)
Quarter: 2024Q3

REPORT INFORMATION
  Report Type: Spontaneous
  Country: US (occurrence: US)
  Receive Date: 20240706
  Receipt Date: 20240806
  Transmission Date: 20241017
  Serious: Yes (Other)
  Sender: AMGEN
  Company Number: US-AMGEN-USASP2024128478

PATIENT
  Age: 56 Year
  Sex: Female

DRUGS (50)
  1. TEPEZZA [Suspect]
     Active Substance: TEPROTUMUMAB-TRBW
     Indication: Endocrine ophthalmopathy
     Dosage: 1000 MILLIGRAM, Q3WK (FIRST INFUSION)
     Route: 042
     Dates: start: 20220520
  2. TEPEZZA [Suspect]
     Active Substance: TEPROTUMUMAB-TRBW
     Dosage: 1500 MILLIGRAM, Q3WK (SECOND INFUSION)
     Route: 042
     Dates: start: 20220610
  3. TEPEZZA [Suspect]
     Active Substance: TEPROTUMUMAB-TRBW
     Dosage: 1500 MILLIGRAM, Q3WK
     Route: 042
     Dates: start: 20220630, end: 2022
  4. SELENIUM [Concomitant]
     Active Substance: SELENIUM
     Dosage: UNK (100MCG)
     Route: 048
  5. TEMOVATE [Concomitant]
     Active Substance: CLOBETASOL PROPIONATE
     Dosage: UNK (0.05%)
     Route: 061
  6. ZOCOR [Concomitant]
     Active Substance: SIMVASTATIN
     Dosage: 40 MILLIGRAM
     Route: 048
  7. ROBAXIN [Concomitant]
     Active Substance: METHOCARBAMOL
     Dosage: 750 MILLIGRAM
     Route: 048
  8. TAPAZOLE [Concomitant]
     Active Substance: METHIMAZOLE
     Dosage: 5 MILLIGRAM
     Route: 048
  9. FLEXERIL [Concomitant]
     Active Substance: CYCLOBENZAPRINE HYDROCHLORIDE
     Dosage: 10 MILLIGRAM
     Route: 048
  10. XANAX [Concomitant]
     Active Substance: ALPRAZOLAM
     Dosage: 0.25 MILLIGRAM
     Route: 048
  11. TOPROL XL [Concomitant]
     Active Substance: METOPROLOL SUCCINATE
     Dosage: 25 MILLIGRAM
     Route: 048
  12. COZAAR [Concomitant]
     Active Substance: LOSARTAN POTASSIUM
     Dosage: 50 MILLIGRAM
     Route: 048
  13. VISTARIL [Concomitant]
     Active Substance: HYDROXYZINE PAMOATE
     Dosage: 50 MILLIGRAM
     Route: 048
  14. LUGOL [Concomitant]
     Active Substance: IODINE\POTASSIUM IODIDE
     Dosage: UNK (FIVE PERCENT)
  15. SYNTHROID [Concomitant]
     Active Substance: LEVOTHYROXINE SODIUM
     Dosage: 125 MICROGRAM
     Route: 048
  16. TUMS [Concomitant]
     Active Substance: CALCIUM CARBONATE
     Dosage: 500 MILLIGRAM
     Route: 048
  17. ROXICODONE [Concomitant]
     Active Substance: OXYCODONE HYDROCHLORIDE
     Dosage: 5 MILLIGRAM
     Route: 048
  18. TYLENOL [Concomitant]
     Active Substance: ACETAMINOPHEN
     Dosage: 500 MILLIGRAM
     Route: 048
  19. SUBLIMAZE [Concomitant]
     Active Substance: FENTANYL CITRATE
     Dosage: 100 MICROGRAM
     Route: 042
  20. PROSTIGMIN [Concomitant]
     Active Substance: NEOSTIGMINE BROMIDE
     Dosage: 3 MILLIGRAM
     Route: 042
  21. ANCEF [Concomitant]
     Active Substance: CEFAZOLIN SODIUM
     Route: 042
  22. NEO SYNEPHRINE [Concomitant]
     Dosage: UNK
     Route: 042
  23. SEVOFLURANE [Concomitant]
     Active Substance: SEVOFLURANE
  24. XYLOCAINE [Concomitant]
     Active Substance: LIDOCAINE HYDROCHLORIDE\LIDOCAINE HYDROCHLORIDE ANHYDROUS
     Dosage: UNK (TWO PERCENT)
     Route: 042
  25. DIPRIVAN [Concomitant]
     Active Substance: ISOPROPYL ALCOHOL\PROPOFOL
     Dosage: 200 MILLIGRAM
     Route: 042
  26. ROBINUL [Concomitant]
     Active Substance: GLYCOPYRROLATE
     Dosage: 0.6 MILLIGRAM
     Route: 042
  27. KETALAR [Concomitant]
     Active Substance: KETAMINE HYDROCHLORIDE
     Dosage: 30 MILLIGRAM
     Route: 042
  28. DECADRON [Concomitant]
     Active Substance: DEXAMETHASONE
     Dosage: 8 MILLIGRAM
     Route: 042
  29. DILAUDID [Concomitant]
     Active Substance: HYDROMORPHONE HYDROCHLORIDE
     Dosage: 0.5 MILLIGRAM
     Route: 042
  30. ZOFRAN [Concomitant]
     Active Substance: ONDANSETRON HYDROCHLORIDE
     Dosage: 4 MILLIGRAM
     Route: 042
  31. MARCAINE WITH EPINEPHRINE [Concomitant]
     Active Substance: BUPIVACAINE HYDROCHLORIDE\EPINEPHRINE BITARTRATE
  32. VITAMIN D3 [Concomitant]
     Active Substance: CHOLECALCIFEROL
     Dosage: 500 MICROGRAM
  33. BENADRYL [Concomitant]
     Active Substance: DIPHENHYDRAMINE HYDROCHLORIDE
     Dosage: UNK (MAX DOSE 50MG)
     Route: 042
  34. ROMAZICON [Concomitant]
     Active Substance: FLUMAZENIL
     Dosage: 0.2 MILLIGRAM
     Route: 042
  35. APRESOLINE HYDROCHLORIDE [Concomitant]
     Active Substance: HYDRALAZINE HYDROCHLORIDE
     Dosage: 5 MILLIGRAM
     Route: 042
  36. TRANDATE [Concomitant]
     Active Substance: LABETALOL HYDROCHLORIDE
     Dosage: 5 MILLIGRAM
     Route: 042
  37. NORMODYNE [Concomitant]
     Active Substance: LABETALOL HYDROCHLORIDE
     Dosage: 5 MILLIGRAM
     Route: 042
  38. NARCAN [Concomitant]
     Active Substance: NALOXONE HYDROCHLORIDE
     Dosage: UNK (0.04 TO 0.4MG)
     Route: 042
  39. PHENERGAN [Concomitant]
     Active Substance: PROMETHAZINE HYDROCHLORIDE
     Dosage: 6.25 MILLIGRAM
     Route: 042
  40. VERSED [Concomitant]
     Active Substance: MIDAZOLAM HYDROCHLORIDE
     Dosage: 2 MILLIGRAM
     Route: 042
  41. NEURONTIN [Concomitant]
     Active Substance: GABAPENTIN
     Dosage: 100 MILLIGRAM
     Route: 048
  42. PROZAC [Concomitant]
     Active Substance: FLUOXETINE HYDROCHLORIDE
     Dosage: 20 MILLIGRAM
     Route: 048
  43. MACROBID [Concomitant]
     Active Substance: NITROFURANTOIN\NITROFURANTOIN MONOHYDRATE
     Dosage: 100 MILLIGRAM
     Route: 048
  44. PROTONIX [Concomitant]
     Active Substance: PANTOPRAZOLE SODIUM
     Dosage: 20 MILLIGRAM
     Route: 048
  45. DESYREL [Concomitant]
     Active Substance: TRAZODONE HYDROCHLORIDE
     Dosage: 50 MILLIGRAM
     Route: 048
  46. NORVASC [Concomitant]
     Active Substance: AMLODIPINE BESYLATE
     Dosage: 10 MILLIGRAM
     Route: 048
  47. ESTRACE [Concomitant]
     Active Substance: ESTRADIOL
     Dosage: UNK (0.1MG/GM)
     Route: 067
  48. NIASPAN [Concomitant]
     Active Substance: NIACIN
     Dosage: 1000 MILLIGRAM
     Route: 048
  49. AUGMENTIN [Concomitant]
     Active Substance: AMOXICILLIN\CLAVULANATE POTASSIUM
     Dosage: 1000 MILLIGRAM
     Route: 048
  50. MUCINEX D [Concomitant]
     Active Substance: GUAIFENESIN\PSEUDOEPHEDRINE HYDROCHLORIDE

REACTIONS (43)
  - Deafness neurosensory [Not Recovered/Not Resolved]
  - Exophthalmos [Unknown]
  - Renal impairment [Unknown]
  - Pain [Not Recovered/Not Resolved]
  - Emotional distress [Not Recovered/Not Resolved]
  - Anxiety [Not Recovered/Not Resolved]
  - Injury [Not Recovered/Not Resolved]
  - Tinnitus [Not Recovered/Not Resolved]
  - Product use complaint [Unknown]
  - Benign neoplasm of thyroid gland [Unknown]
  - Essential hypertension [Unknown]
  - Obesity [Unknown]
  - Alopecia [Unknown]
  - Diplopia [Unknown]
  - Dyspnoea [Unknown]
  - Bowel movement irregularity [Unknown]
  - Headache [Not Recovered/Not Resolved]
  - Nervousness [Unknown]
  - Blood pressure fluctuation [Unknown]
  - Sleep disorder [Unknown]
  - Temperature intolerance [Unknown]
  - Acne [Unknown]
  - Dry skin [Unknown]
  - Myalgia [Unknown]
  - Arthralgia [Unknown]
  - Constipation [Unknown]
  - Neck pain [Unknown]
  - Rash [Unknown]
  - Skin lesion [Unknown]
  - Hypersensitivity [Unknown]
  - Contusion [Unknown]
  - Strabismus [Unknown]
  - Osteoarthritis [Unknown]
  - Blood glucose increased [Unknown]
  - Blood triglycerides abnormal [Unknown]
  - Blood pressure abnormal [Unknown]
  - High density lipoprotein decreased [Unknown]
  - Low density lipoprotein increased [Unknown]
  - Depression [Unknown]
  - Sinus congestion [Unknown]
  - Cough [Unknown]
  - Glomerular filtration rate abnormal [Unknown]
  - Blood chloride abnormal [Unknown]

NARRATIVE: CASE EVENT DATE: 20220101
